FAERS Safety Report 19002146 (Version 1)
Quarter: 2021Q1

REPORT INFORMATION
  Report Type: Spontaneous
  Country: US (occurrence: US)
  Receive Date: 20210312
  Receipt Date: 20210312
  Transmission Date: 20210420
  Serious: Yes (Other)
  Sender: FDA-Public Use
  Company Number: US-VIIV HEALTHCARE LIMITED-US2021AMR060492

PATIENT
  Age: 68 Year
  Sex: Male

DRUGS (1)
  1. TRIUMEQ [Suspect]
     Active Substance: ABACAVIR SULFATE\DOLUTEGRAVIR SODIUM\LAMIVUDINE
     Indication: HIV INFECTION
     Dosage: UNK UNK, QD (600?50?300 MG)
     Route: 048
     Dates: start: 201602

REACTIONS (2)
  - Ill-defined disorder [Unknown]
  - Cerebrovascular accident [Unknown]

NARRATIVE: CASE EVENT DATE: 202101
